FAERS Safety Report 17157545 (Version 1)
Quarter: 2019Q4

REPORT INFORMATION
  Report Type: Spontaneous
  Country: NL (occurrence: SE)
  Receive Date: 20191216
  Receipt Date: 20191216
  Transmission Date: 20200122
  Serious: Yes (Hospitalization)
  Sender: FDA-Public Use
  Company Number: SE-BAYER-2019-223689

PATIENT
  Age: 37 Year
  Sex: Female
  Weight: 90 kg

DRUGS (6)
  1. ASACOL [Concomitant]
     Active Substance: MESALAMINE
  2. MIRENA [Suspect]
     Active Substance: LEVONORGESTREL
     Indication: DYSMENORRHOEA
  3. SALAZOPYRIN [Concomitant]
     Active Substance: SULFASALAZINE
  4. MIRENA [Suspect]
     Active Substance: LEVONORGESTREL
     Indication: DYSMENORRHOEA
     Dosage: 20 MCG/24HR, CONT
     Route: 015
     Dates: start: 20191120
  5. MIRENA [Suspect]
     Active Substance: LEVONORGESTREL
     Indication: ENDOMETRIOSIS
  6. MIRENA [Suspect]
     Active Substance: LEVONORGESTREL
     Indication: ENDOMETRIOSIS

REACTIONS (6)
  - Uterine pain [Not Recovered/Not Resolved]
  - Proctalgia [Not Recovered/Not Resolved]
  - Back pain [Not Recovered/Not Resolved]
  - Uterine spasm [Not Recovered/Not Resolved]
  - Pyrexia [Not Recovered/Not Resolved]
  - Rectal spasm [Not Recovered/Not Resolved]

NARRATIVE: CASE EVENT DATE: 20191120
